FAERS Safety Report 15567672 (Version 1)
Quarter: 2018Q4

REPORT INFORMATION
  Report Type: Spontaneous
  Country: US (occurrence: US)
  Receive Date: 20181030
  Receipt Date: 20181030
  Transmission Date: 20190205
  Serious: Yes (Hospitalization)
  Sender: FDA-Public Use
  Company Number: PHEH2018US045036

PATIENT
  Age: 58 Year
  Sex: Female
  Weight: 124.9 kg

DRUGS (3)
  1. KYMRIAH [Suspect]
     Active Substance: TISAGENLECLEUCEL
     Indication: DIFFUSE LARGE B-CELL LYMPHOMA
     Dosage: 0.5 X 10^6 VARIABLE TCELL/KG
     Route: 042
     Dates: start: 20181002
  2. FLUDARABINE [Concomitant]
     Active Substance: FLUDARABINE PHOSPHATE
     Indication: DIFFUSE LARGE B-CELL LYMPHOMA
     Dosage: 40 MG, UNK
     Route: 042
     Dates: start: 20180927, end: 20180929
  3. CYCLOPHOSPHAMIDE. [Concomitant]
     Active Substance: CYCLOPHOSPHAMIDE
     Indication: DIFFUSE LARGE B-CELL LYMPHOMA
     Dosage: 540 MG, UNK
     Route: 065
     Dates: start: 20180927, end: 20180927

REACTIONS (8)
  - Lymphadenopathy [Unknown]
  - Cytokine release syndrome [Recovering/Resolving]
  - Pyrexia [Unknown]
  - Neurotoxicity [Recovering/Resolving]
  - Confusional state [Unknown]
  - Pain [Unknown]
  - Malaise [Unknown]
  - Dyspnoea [Unknown]

NARRATIVE: CASE EVENT DATE: 20181015
